FAERS Safety Report 4555766-7 (Version None)
Quarter: 2005Q1

REPORT INFORMATION
  Report Type: 
  Country: None (occurrence: None)
  Receive Date: 20050118
  Receipt Date: 20040324
  Transmission Date: 20050727
  Serious: No
  Sender: FDA-Public Use
  Company Number: A001-002-006024

PATIENT
  Age: 78 Year
  Sex: 0

DRUGS (2)
  1. ARICEPT [Suspect]
     Dosage: ORAL
     Route: 048
     Dates: end: 20020101
  2. NAMENDA [Suspect]
     Dosage: 10 MG, ORAL
     Route: 048
     Dates: start: 20040301

REACTIONS (1)
  - CEREBRAL HAEMORRHAGE [None]
